FAERS Safety Report 13485496 (Version 6)
Quarter: 2017Q3

REPORT INFORMATION
  Report Type: Spontaneous
  Country: US (occurrence: US)
  Receive Date: 20170425
  Receipt Date: 20170824
  Transmission Date: 20171127
  Serious: Yes (Other)
  Sender: FDA-Public Use
  Company Number: US-PFIZER INC-2017175136

PATIENT
  Age: 54 Year
  Sex: Female

DRUGS (2)
  1. LETROZOLE. [Concomitant]
     Active Substance: LETROZOLE
     Dosage: UNK
  2. IBRANCE [Suspect]
     Active Substance: PALBOCICLIB
     Indication: BREAST CANCER METASTATIC
     Dosage: 125 MG, CYCLIC (TAKE 1 CAPSULE BY MOUTH EVERY DAY FOR 21 DAYS ON THEN 7 DAYS OFF/1-21 OF 28 DAY)
     Route: 048
     Dates: start: 201702

REACTIONS (11)
  - Constipation [Unknown]
  - Blister [Unknown]
  - Nail disorder [Not Recovered/Not Resolved]
  - Skin exfoliation [Recovered/Resolved]
  - Asthenia [Unknown]
  - Fatigue [Not Recovered/Not Resolved]
  - Dehydration [Unknown]
  - Tremor [Unknown]
  - Diarrhoea [Recovered/Resolved]
  - Pain of skin [Unknown]
  - Decreased appetite [Unknown]
